FAERS Safety Report 5675123-X (Version None)
Quarter: 2008Q2

REPORT INFORMATION
  Report Type: 
  Country: None (occurrence: None)
  Receive Date: 20080303
  Receipt Date: 20070612
  Transmission Date: 20081010
  Serious: Yes (Hospitalization, Other)
  Sender: FDA-Public Use
  Company Number: RB-6871-2007

PATIENT

DRUGS (4)
  1. SUBOXONE [Suspect]
     Indication: DRUG USE FOR UNKNOWN INDICATION
     Dosage: 16 MG TRANSPLACENTAL
     Route: 064
     Dates: start: 20050101, end: 20050301
  2. SOBUTEX [Suspect]
     Indication: DRUG USE FOR UNKNOWN INDICATION
     Dosage: 16 MG, TRANSPLACENTAL, 20 MG TRANSPLACENTAL
     Route: 064
     Dates: start: 20050302, end: 20050801
  3. SOBUTEX [Suspect]
     Indication: DRUG USE FOR UNKNOWN INDICATION
     Dosage: 16 MG, TRANSPLACENTAL, 20 MG TRANSPLACENTAL
     Route: 064
     Dates: start: 20050801, end: 20051001
  4. PHENOBARBITAL TAB [Concomitant]

REACTIONS (2)
  - DRUG EXPOSURE DURING PREGNANCY [None]
  - DRUG WITHDRAWAL SYNDROME NEONATAL [None]
